FAERS Safety Report 20496893 (Version 1)
Quarter: 2022Q1

REPORT INFORMATION
  Report Type: Spontaneous
  Country: US (occurrence: US)
  Receive Date: 20220221
  Receipt Date: 20220221
  Transmission Date: 20220423
  Serious: Yes (Other)
  Sender: FDA-Public Use
  Company Number: US-DAIICHI SANKYO EUROPE GMBH-DSU-2022-105861

PATIENT
  Sex: Male

DRUGS (2)
  1. PRASUGREL HYDROCHLORIDE [Suspect]
     Active Substance: PRASUGREL HYDROCHLORIDE
     Indication: Stent placement
     Dosage: 10 MG, UNK
     Route: 048
     Dates: start: 20220204
  2. ZOCOR [Suspect]
     Active Substance: SIMVASTATIN
     Indication: Product used for unknown indication
     Dosage: UNK
     Route: 065

REACTIONS (6)
  - Transient ischaemic attack [Unknown]
  - Feeling abnormal [Not Recovered/Not Resolved]
  - Dysphagia [Unknown]
  - Visual impairment [Unknown]
  - Memory impairment [Unknown]
  - Adverse event [Unknown]

NARRATIVE: CASE EVENT DATE: 20220101
